FAERS Safety Report 9489935 (Version 3)
Quarter: 2013Q4

REPORT INFORMATION
  Report Type: Report from Study
  Country: US (occurrence: US)
  Receive Date: 20130829
  Receipt Date: 20131101
  Transmission Date: 20140711
  Serious: Yes (Hospitalization, Other)
  Sender: FDA-Public Use
  Company Number: US-CUBIST PHARMACEUTICAL, INC.-2013CBST000702

PATIENT
  Sex: 0

DRUGS (6)
  1. CLINDAMYCIN [Suspect]
     Indication: STAPHYLOCOCCAL BACTERAEMIA
     Dosage: 7 MG/KG, ONCE DAILY
     Route: 042
     Dates: start: 20130726, end: 20130801
  2. BLINDED DAPTOMYCIN [Suspect]
     Indication: STAPHYLOCOCCAL BACTERAEMIA
     Dosage: 7 MG/KG, ONCE DAILY
     Route: 042
     Dates: start: 20130726, end: 20130801
  3. VANCOMYCIN [Suspect]
     Indication: STAPHYLOCOCCAL BACTERAEMIA
     Dosage: 7 MG/KG, ONCE DAILY
     Route: 042
     Dates: start: 20130726, end: 20130801
  4. CUBICIN [Suspect]
     Indication: WOUND DRAINAGE
     Dosage: 500 MG, QD
     Route: 042
     Dates: start: 20130802
  5. CUBICIN [Suspect]
     Indication: OSTEOMYELITIS
     Dosage: 6.5 MG/KG, QD
     Route: 042
     Dates: start: 20130802
  6. CUBICIN [Suspect]
     Indication: OFF LABEL USE

REACTIONS (1)
  - Bacteraemia [Recovered/Resolved]
